FAERS Safety Report 6257730-9 (Version None)
Quarter: 2009Q3

REPORT INFORMATION
  Report Type: 
  Country: None (occurrence: None)
  Receive Date: 20090702
  Receipt Date: 20090619
  Transmission Date: 20100115
  Serious: Yes (Hospitalization)
  Sender: FDA-Public Use
  Company Number: CIP09001672

PATIENT
  Age: 61 Year
  Sex: Female

DRUGS (4)
  1. RISEDRONATE SODIUM [Suspect]
     Indication: OSTEOPOROSIS
     Dosage: 17.5 MG ONCE WEEKLY, ORAL
     Route: 048
     Dates: start: 20090101, end: 20090601
  2. OLMESARTAN MEDOXOMIL [Concomitant]
  3. GASTER [Concomitant]
  4. CONIEL (BENIDIPINE HYDROCHLORIDE) [Concomitant]

REACTIONS (3)
  - CONVULSION [None]
  - MUSCULOSKELETAL STIFFNESS [None]
  - TETANY [None]
